FAERS Safety Report 19670283 (Version 1)
Quarter: 2021Q3

REPORT INFORMATION
  Report Type: Spontaneous
  Country: US (occurrence: US)
  Receive Date: 20210806
  Receipt Date: 20210806
  Transmission Date: 20211014
  Serious: Yes (Other)
  Sender: FDA-Public Use
  Company Number: US-SAOL THERAPEUTICS-2020SAO00490

PATIENT
  Age: 22 Year
  Sex: Female

DRUGS (2)
  1. LIORESAL [Suspect]
     Active Substance: BACLOFEN
     Indication: MUSCLE SPASTICITY
     Dosage: 80 ?G, \DAY
     Route: 037
     Dates: end: 2020
  2. LIORESAL [Suspect]
     Active Substance: BACLOFEN
     Dosage: 138 ?G, \DAY
     Route: 037
     Dates: start: 2020

REACTIONS (2)
  - Therapy non-responder [Unknown]
  - Complication associated with device [Unknown]

NARRATIVE: CASE EVENT DATE: 20200918
